FAERS Safety Report 4412398-9 (Version None)
Quarter: 2004Q3

REPORT INFORMATION
  Report Type: 
  Country: None (occurrence: None)
  Receive Date: 20040727
  Receipt Date: 20040712
  Transmission Date: 20050211
  Serious: Yes (Death, Hospitalization)
  Sender: FDA-Public Use
  Company Number: 04P-163-0266863-00

PATIENT
  Age: 47 Year
  Sex: Male

DRUGS (11)
  1. HUMIRA [Suspect]
     Indication: RHEUMATOID ARTHRITIS
     Dosage: 40 MG, 1 IN 2 WK, SUBCUTANEOUS
     Route: 058
     Dates: start: 20031022, end: 20040710
  2. METHOTREXATE [Concomitant]
  3. FOLIC ACID [Concomitant]
  4. PREDNISONE TAB [Concomitant]
  5. BUCINDOLOL HYDROCHLORIDE [Concomitant]
  6. ATORVASTATIN CALCIUM [Concomitant]
  7. LOTREL [Concomitant]
  8. BUPROPION HYDROCHLORIDE [Concomitant]
  9. CRESTOR [Concomitant]
  10. HYZAAR [Concomitant]
  11. METOPROLOL SUCCINATE [Concomitant]

REACTIONS (6)
  - ACUTE MYOCARDIAL INFARCTION [None]
  - CARDIAC ARREST [None]
  - CARDIOMEGALY [None]
  - CYANOSIS [None]
  - DIARRHOEA [None]
  - HEPATIC ENZYME INCREASED [None]
